FAERS Safety Report 14603291 (Version 1)
Quarter: 2018Q1

REPORT INFORMATION
  Report Type: Spontaneous
  Country: US (occurrence: US)
  Receive Date: 20180304
  Receipt Date: 20180304
  Transmission Date: 20180509
  Serious: No
  Sender: FDA-Public Use
  Company Number: None

PATIENT
  Age: 71 Year
  Sex: Female

DRUGS (1)
  1. JAKAFI [Suspect]
     Active Substance: RUXOLITINIB
     Indication: MYELOFIBROSIS

REACTIONS (4)
  - Haemoglobin decreased [None]
  - Platelet count increased [None]
  - Splenomegaly [None]
  - Weight increased [None]

NARRATIVE: CASE EVENT DATE: 20180303
